FAERS Safety Report 24180910 (Version 2)
Quarter: 2024Q3

REPORT INFORMATION
  Report Type: Spontaneous
  Country: TW (occurrence: TW)
  Receive Date: 20240806
  Receipt Date: 20240905
  Transmission Date: 20241016
  Serious: Yes (Other)
  Sender: MERCK
  Company Number: TW-009507513-2408TWN001003

PATIENT
  Age: 49 Year
  Sex: Male

DRUGS (5)
  1. KEYTRUDA [Suspect]
     Active Substance: PEMBROLIZUMAB
     Indication: Head and neck cancer
     Dosage: 100 MILLIGRAM, Q3W
  2. KEYTRUDA [Suspect]
     Active Substance: PEMBROLIZUMAB
     Dosage: Q3W
     Dates: start: 20210809
  3. KEYTRUDA [Suspect]
     Active Substance: PEMBROLIZUMAB
     Dosage: UNK
     Dates: start: 20220502
  4. OXALIPLATIN [Suspect]
     Active Substance: OXALIPLATIN
     Indication: Head and neck cancer
     Dosage: UNK, Q3W
  5. FLUOROURACIL [Suspect]
     Active Substance: FLUOROURACIL
     Indication: Head and neck cancer
     Dosage: UNK, Q3W

REACTIONS (5)
  - Laryngectomy [Unknown]
  - Neck dissection [Unknown]
  - Oesophagectomy [Unknown]
  - Head and neck plastic surgery [Unknown]
  - Incorrect dose administered [Unknown]

NARRATIVE: CASE EVENT DATE: 20200723
